FAERS Safety Report 4558023-8 (Version None)
Quarter: 2005Q1

REPORT INFORMATION
  Report Type: 
  Country: None (occurrence: None)
  Receive Date: 20050121
  Receipt Date: 20040601
  Transmission Date: 20050727
  Serious: No
  Sender: FDA-Public Use
  Company Number: US-BRISTOL-MYERS SQUIBB COMPANY-12600920

PATIENT
  Age: 57 Year
  Sex: Female
  Weight: 52 kg

DRUGS (3)
  1. SERZONE [Suspect]
     Indication: DEPRESSION
     Dosage: STARTED APPROXIMATELY TEN YEARS AGO
     Route: 048
  2. HORMONE THERAPY [Concomitant]
  3. LITHOBID [Concomitant]

REACTIONS (2)
  - CYSTITIS INTERSTITIAL [None]
  - URINARY RETENTION [None]
